FAERS Safety Report 24540076 (Version 1)
Quarter: 2024Q4

REPORT INFORMATION
  Report Type: Spontaneous
  Country: CN (occurrence: CN)
  Receive Date: 20241023
  Receipt Date: 20241023
  Transmission Date: 20250114
  Serious: Yes (Other)
  Sender: GILEAD
  Company Number: CN-GILEAD-2024-0691357

PATIENT

DRUGS (3)
  1. VEMLIDY [Suspect]
     Active Substance: TENOFOVIR ALAFENAMIDE FUMARATE
     Indication: Viral hepatitis carrier
     Dosage: UNK
     Route: 065
  2. LEUCOGEN [Concomitant]
     Active Substance: LEUCOGEN
  3. BATILOL [Concomitant]
     Active Substance: BATILOL

REACTIONS (3)
  - Renal injury [Unknown]
  - White blood cell count decreased [Unknown]
  - Hepatitis B antibody positive [Recovered/Resolved]
